FAERS Safety Report 5049073-6 (Version None)
Quarter: 2006Q3

REPORT INFORMATION
  Report Type: 
  Country: None (occurrence: None)
  Receive Date: 20060706
  Receipt Date: 20060627
  Transmission Date: 20061208
  Serious: Yes (Hospitalization)
  Sender: FDA-Public Use
  Company Number: 2006080866

PATIENT
  Sex: Female

DRUGS (1)
  1. MEDROXYPROGESTERONE ACETATE [Suspect]
     Indication: CONTRACEPTION
     Dosage: MOST RECENT INJECTION, INTRAMUSCULAR
     Route: 030
     Dates: start: 20060401, end: 20060401

REACTIONS (2)
  - INJECTION SITE ABSCESS [None]
  - PHARMACEUTICAL PRODUCT COMPLAINT [None]
